FAERS Safety Report 16651720 (Version 1)
Quarter: 2019Q3

REPORT INFORMATION
  Report Type: Spontaneous
  Country: US (occurrence: US)
  Receive Date: 20190617
  Receipt Date: 20190617
  Transmission Date: 20191004
  Serious: No
  Sender: FDA-Public Use
  Company Number: None

PATIENT
  Sex: Female

DRUGS (6)
  1. IPUPROFEN TAB [Concomitant]
  2. LEVOTHYROXIN TAB [Concomitant]
  3. OCALIVA [Suspect]
     Active Substance: OBETICHOLIC ACID
     Indication: PRIMARY BILIARY CHOLANGITIS
     Route: 048
     Dates: start: 20161122
  4. LINZESS CAP [Concomitant]
  5. JUEL FE TAB [Concomitant]
  6. IPUPROFEN TAB [Concomitant]

REACTIONS (2)
  - Oedema peripheral [None]
  - Weight increased [None]
